FAERS Safety Report 22325308 (Version 1)
Quarter: 2023Q2

REPORT INFORMATION
  Report Type: Spontaneous
  Country: US (occurrence: US)
  Receive Date: 20230516
  Receipt Date: 20230516
  Transmission Date: 20230722
  Serious: Yes (Hospitalization)
  Sender: FDA-Public Use
  Company Number: US-GLASSHOUSE PHARMACEUTICALS LIMITED CA-2023GLH00007

PATIENT
  Age: 28 Year
  Sex: Male

DRUGS (9)
  1. ARIPIPRAZOLE [Suspect]
     Active Substance: ARIPIPRAZOLE
     Indication: Bipolar disorder
     Dosage: 2 MG
  2. ARIPIPRAZOLE [Suspect]
     Active Substance: ARIPIPRAZOLE
     Dosage: 4 MG
  3. ARIPIPRAZOLE [Suspect]
     Active Substance: ARIPIPRAZOLE
     Dosage: 1 MG
  4. ARIPIPRAZOLE [Suspect]
     Active Substance: ARIPIPRAZOLE
     Dosage: 2 MG
  5. LITHIUM [Concomitant]
     Active Substance: LITHIUM
     Dosage: 750 MG, 1X/DAY; MORNING
  6. LITHIUM [Concomitant]
     Active Substance: LITHIUM
     Dosage: 900 MG, 1X/DAY; BEDTIME
  7. BENZTROPINE [Concomitant]
     Active Substance: BENZTROPINE
     Dosage: 1 MG
  8. METFORMIN [Concomitant]
     Active Substance: METFORMIN HYDROCHLORIDE
     Dosage: 500 MG
  9. LEVOTHYROXINE [Concomitant]
     Active Substance: LEVOTHYROXINE
     Dosage: 100 ?G, 1X/DAY; MORNING

REACTIONS (1)
  - Pericarditis [Recovered/Resolved]
